FAERS Safety Report 12605590 (Version 2)
Quarter: 2016Q3

REPORT INFORMATION
  Report Type: Report from Study
  Country: JP (occurrence: JP)
  Receive Date: 20160729
  Receipt Date: 20160812
  Transmission Date: 20161109
  Serious: Yes (Death, Life-Threatening, Hospitalization)
  Sender: FDA-Public Use
  Company Number: JP-ACTELION-A-CH2016-139931

PATIENT
  Age: 78 Year
  Sex: Female

DRUGS (14)
  1. RIOCIGUAT [Suspect]
     Active Substance: RIOCIGUAT
     Dosage: 1 MG, TID
     Route: 048
     Dates: start: 20160408, end: 20160410
  2. LANSOPRAZOLE. [Concomitant]
     Active Substance: LANSOPRAZOLE
  3. OXYGEN. [Concomitant]
     Active Substance: OXYGEN
  4. SARPOGRELATE [Concomitant]
     Active Substance: SARPOGRELATE
  5. REBAMIPIDE [Concomitant]
     Active Substance: REBAMIPIDE
  6. OPSUMIT [Suspect]
     Active Substance: MACITENTAN
     Indication: PULMONARY ARTERIAL HYPERTENSION
     Dosage: 5 MG, QD
     Route: 048
     Dates: start: 20160412, end: 20160705
  7. CARBOCISTEINE [Concomitant]
     Active Substance: CARBOCYSTEINE
  8. TRICHLORMETHIAZIDE [Concomitant]
     Active Substance: TRICHLORMETHIAZIDE
  9. SPIRONOLACTONE. [Concomitant]
     Active Substance: SPIRONOLACTONE
  10. RIOCIGUAT [Suspect]
     Active Substance: RIOCIGUAT
     Indication: PULMONARY ARTERIAL HYPERTENSION
     Dosage: 0.5 MG, TID
     Route: 048
     Dates: start: 20160406, end: 20160407
  11. DIMEMORFAN PHOSPHATE [Concomitant]
     Active Substance: DIMEMORFAN PHOSPHATE
  12. AZOSEMIDE [Concomitant]
     Active Substance: AZOSEMIDE
  13. RIOCIGUAT [Suspect]
     Active Substance: RIOCIGUAT
     Dosage: 2 MG, TID
     Route: 048
     Dates: start: 20160411, end: 20160705
  14. APIXABAN [Concomitant]
     Active Substance: APIXABAN

REACTIONS (3)
  - Hypercapnia [Fatal]
  - Cell marker increased [Fatal]
  - Interstitial lung disease [Fatal]

NARRATIVE: CASE EVENT DATE: 20160517
